FAERS Safety Report 4299614-1 (Version None)
Quarter: 2004Q1

REPORT INFORMATION
  Report Type: 
  Country: None (occurrence: None)
  Receive Date: 20040219
  Receipt Date: 20040219
  Transmission Date: 20041129
  Serious: Yes (Death, Life-Threatening, Hospitalization, Disabling, Other)
  Sender: FDA-Public Use
  Company Number: None

PATIENT
  Age: 63 Year
  Sex: Female
  Weight: 45.3597 kg

DRUGS (8)
  1. ZELNORM [Suspect]
  2. GEMCITABINE [Suspect]
     Indication: BIOPSY OVARY
     Dosage: TWO ARM
     Dates: start: 20030601
  3. TAXOL [Suspect]
     Indication: OVARIAN CANCER
     Dosage: 11 VENA CAVA
     Dates: start: 19980101, end: 19990101
  4. DEXAMETHASONE [Suspect]
  5. HYCAMTIN [Concomitant]
  6. DOXIL [Concomitant]
  7. PARAPLATIN [Concomitant]
  8. PROCRIT [Concomitant]

REACTIONS (7)
  - DEHYDRATION [None]
  - DISEASE RECURRENCE [None]
  - DRUG HYPERSENSITIVITY [None]
  - DRUG INEFFECTIVE [None]
  - GASTRIC NEOPLASM [None]
  - MYOCARDIAL INFARCTION [None]
  - STARVATION [None]
